FAERS Safety Report 20708401 (Version 1)
Quarter: 2022Q2

REPORT INFORMATION
  Report Type: Spontaneous
  Country: US (occurrence: None)
  Receive Date: 20220414
  Receipt Date: 20220414
  Transmission Date: 20220721
  Serious: Yes (Other)
  Sender: FDA-Public Use
  Company Number: US-MLMSERVICE-20220404-3480643-1

PATIENT
  Age: 21 Year
  Sex: Female
  Weight: 68 kg

DRUGS (4)
  1. HYDROMORPHONE [Suspect]
     Active Substance: HYDROMORPHONE
     Indication: Central nervous system stimulation
     Route: 042
  2. HYDROMORPHONE [Suspect]
     Active Substance: HYDROMORPHONE
     Indication: Motor dysfunction
  3. MIDAZOLAM [Suspect]
     Active Substance: MIDAZOLAM
     Indication: Central nervous system stimulation
     Route: 042
  4. MIDAZOLAM [Suspect]
     Active Substance: MIDAZOLAM
     Indication: Motor dysfunction

REACTIONS (2)
  - Apnoea [Unknown]
  - Hypopnoea [Unknown]
